FAERS Safety Report 16681548 (Version 1)
Quarter: 2019Q3

REPORT INFORMATION
  Report Type: Spontaneous
  Country: AU (occurrence: AU)
  Receive Date: 20190808
  Receipt Date: 20190808
  Transmission Date: 20191004
  Serious: No
  Sender: FDA-Public Use
  Company Number: AU-BEH-2019105161

PATIENT
  Age: 76 Year
  Sex: Female
  Weight: 58 kg

DRUGS (2)
  1. PRIVIGEN [Suspect]
     Active Substance: HUMAN IMMUNOGLOBULIN G
     Indication: LYMPHOMA
     Dosage: 24 GRAM, QMT
     Route: 042
  2. PRIVIGEN [Suspect]
     Active Substance: HUMAN IMMUNOGLOBULIN G
     Dosage: 20 UNK, TOT
     Route: 042
     Dates: start: 20190724, end: 20190724

REACTIONS (5)
  - Chills [Recovered/Resolved]
  - Drug interaction [Unknown]
  - Back pain [Recovered/Resolved]
  - Food interaction [Unknown]
  - No adverse event [Unknown]

NARRATIVE: CASE EVENT DATE: 20190724
